FAERS Safety Report 17074470 (Version 1)
Quarter: 2019Q4

REPORT INFORMATION
  Report Type: Spontaneous
  Country: GB (occurrence: GB)
  Receive Date: 20191126
  Receipt Date: 20191126
  Transmission Date: 20200122
  Serious: Yes (Other)
  Sender: FDA-Public Use
  Company Number: GB-TEVA-2019-GB-1141071

PATIENT
  Age: 59 Year
  Sex: Female
  Weight: 62.59 kg

DRUGS (2)
  1. DOXYCYCLINE HYCLATE. [Suspect]
     Active Substance: DOXYCYCLINE HYCLATE
     Dosage: 200 MG FIRST DAY
     Route: 048
     Dates: start: 20191004, end: 20191004
  2. DOXYCYCLINE HYCLATE. [Suspect]
     Active Substance: DOXYCYCLINE HYCLATE
     Indication: ANIMAL BITE
     Dosage: 100 MG SECOND DAY
     Route: 048
     Dates: start: 20191005, end: 20191006

REACTIONS (3)
  - Neck pain [Not Recovered/Not Resolved]
  - Headache [Recovering/Resolving]
  - Head discomfort [Not Recovered/Not Resolved]

NARRATIVE: CASE EVENT DATE: 20191004
